FAERS Safety Report 4282199-3 (Version None)
Quarter: 2004Q1

REPORT INFORMATION
  Report Type: 
  Country: None (occurrence: None)
  Receive Date: 20040130
  Receipt Date: 20040120
  Transmission Date: 20041129
  Serious: Yes (Hospitalization)
  Sender: FDA-Public Use
  Company Number: US-GLAXOSMITHKLINE-A0494288A

PATIENT
  Age: 56 Year
  Sex: Male
  Weight: 78.2 kg

DRUGS (7)
  1. TOPOTECAN [Suspect]
     Indication: LUNG CANCER METASTATIC
     Dosage: 2.5MG SEE DOSAGE TEXT
     Route: 048
     Dates: start: 20031222, end: 20040102
  2. OXYCONTIN [Concomitant]
     Dosage: 20MG TWICE PER DAY
     Dates: start: 20031201
  3. ENDOCET [Concomitant]
     Dosage: 10MG AS REQUIRED
  4. MARINOL [Concomitant]
     Indication: ANOREXIA
     Dosage: 5MG THREE TIMES PER DAY
     Dates: start: 20031120
  5. VASOTEC [Concomitant]
     Indication: HYPERTENSION
     Dosage: 20MG PER DAY
  6. ZOCOR [Concomitant]
     Indication: HYPERCHOLESTEROLAEMIA
     Dosage: 40MG PER DAY
  7. AVANDIA [Concomitant]
     Indication: DIABETES MELLITUS
     Dosage: 4MG PER DAY
     Dates: start: 20030930

REACTIONS (9)
  - ASTHENIA [None]
  - DEHYDRATION [None]
  - DRUG TOLERANCE DECREASED [None]
  - FAILURE TO THRIVE [None]
  - FATIGUE [None]
  - ILL-DEFINED DISORDER [None]
  - NAUSEA [None]
  - VOMITING [None]
  - WEIGHT DECREASED [None]
